FAERS Safety Report 13014194 (Version 1)
Quarter: 2016Q4

REPORT INFORMATION
  Report Type: Spontaneous
  Country: SI (occurrence: SI)
  Receive Date: 20161209
  Receipt Date: 20161209
  Transmission Date: 20170207
  Serious: Yes (Life-Threatening, Hospitalization, Disabling, Other)
  Sender: FDA-Public Use
  Company Number: SI-ABBVIE-16K-261-1804419-00

PATIENT
  Age: 84 Year
  Sex: Male
  Weight: 65 kg

DRUGS (1)
  1. DUODOPA [Suspect]
     Active Substance: CARBIDOPA\LEVODOPA
     Indication: PARKINSON^S DISEASE
     Route: 050
     Dates: start: 20161121

REACTIONS (3)
  - Abscess [Recovering/Resolving]
  - C-reactive protein increased [Unknown]
  - Computerised tomogram abdomen abnormal [Unknown]

NARRATIVE: CASE EVENT DATE: 2016
